FAERS Safety Report 20518248 (Version 2)
Quarter: 2022Q1

REPORT INFORMATION
  Report Type: Spontaneous
  Country: AR (occurrence: AR)
  Receive Date: 20220225
  Receipt Date: 20220311
  Transmission Date: 20220423
  Serious: Yes (Life-Threatening, Hospitalization)
  Sender: FDA-Public Use
  Company Number: AR-TEVA-2022-AR-2009279

PATIENT
  Age: 5 Year
  Sex: Male
  Weight: 14.5 kg

DRUGS (5)
  1. VALPROIC ACID [Suspect]
     Active Substance: VALPROIC ACID
     Indication: Epilepsy
     Route: 065
  2. LORAZEPAM [Suspect]
     Active Substance: LORAZEPAM
     Indication: Generalised tonic-clonic seizure
     Dosage: 0.1 G/KG
     Route: 065
  3. PHENYTOIN [Suspect]
     Active Substance: PHENYTOIN
     Indication: Generalised tonic-clonic seizure
     Route: 065
  4. CLINDAMYCIN [Suspect]
     Active Substance: CLINDAMYCIN
     Indication: Evidence based treatment
     Route: 065
  5. CEFTAZIDIME [Suspect]
     Active Substance: CEFTAZIDIME
     Indication: Evidence based treatment
     Route: 065

REACTIONS (10)
  - Acute hepatic failure [Recovering/Resolving]
  - Toxic encephalopathy [Recovering/Resolving]
  - Shock symptom [Recovering/Resolving]
  - Metabolic acidosis [Recovering/Resolving]
  - Pupils unequal [Recovering/Resolving]
  - Strabismus [Recovering/Resolving]
  - Hepatomegaly [Recovering/Resolving]
  - Hepatic function abnormal [Recovering/Resolving]
  - Cutaneous mucormycosis [Recovering/Resolving]
  - Drug ineffective [Unknown]
